FAERS Safety Report 17670101 (Version 3)
Quarter: 2020Q2

REPORT INFORMATION
  Report Type: Spontaneous
  Country: US (occurrence: US)
  Receive Date: 20200415
  Receipt Date: 20200521
  Transmission Date: 20200713
  Serious: Yes (Other)
  Sender: FDA-Public Use
  Company Number: US-PFIZER INC-2020154889

PATIENT
  Age: 83 Year
  Sex: Female
  Weight: 61.69 kg

DRUGS (1)
  1. LATANOPROST. [Suspect]
     Active Substance: LATANOPROST
     Indication: INTRAOCULAR PRESSURE INCREASED
     Dosage: 2 GTT, DAILY (1 DROP IN BOTH EYES DAILY)
     Route: 047

REACTIONS (7)
  - Incorrect dose administered by product [Unknown]
  - Accidental exposure to product [Unknown]
  - Sleep deficit [Unknown]
  - Eye irritation [Recovering/Resolving]
  - Exposure via skin contact [Unknown]
  - Product complaint [Unknown]
  - Fatigue [Unknown]

NARRATIVE: CASE EVENT DATE: 20200413
